FAERS Safety Report 19796535 (Version 5)
Quarter: 2022Q1

REPORT INFORMATION
  Report Type: Report from Study
  Country: US (occurrence: US)
  Receive Date: 20210907
  Receipt Date: 20220112
  Transmission Date: 20220423
  Serious: Yes (Other)
  Sender: FDA-Public Use
  Company Number: US-GLAXOSMITHKLINE-US2021179585

PATIENT
  Age: 67 Year
  Sex: Female

DRUGS (7)
  1. NIRAPARIB [Suspect]
     Active Substance: NIRAPARIB
     Indication: Ovarian cancer
     Dosage: 200 MG, QD, 5:00 PM
     Route: 048
     Dates: start: 20210821
  2. NIRAPARIB [Suspect]
     Active Substance: NIRAPARIB
     Dosage: 200 MG, QD
     Route: 048
  3. NIRAPARIB [Suspect]
     Active Substance: NIRAPARIB
     Dosage: 200 MG, QD
  4. NIRAPARIB [Suspect]
     Active Substance: NIRAPARIB
     Dosage: 200 MG, QD
     Dates: end: 20220109
  5. AMLODIPINE [Suspect]
     Active Substance: AMLODIPINE BESYLATE
     Indication: Hypertension
     Dosage: UNK
  6. AMLODIPINE [Suspect]
     Active Substance: AMLODIPINE BESYLATE
     Dosage: 10 MG (INCREASED DOSE)
  7. LEVOTHYROXINE [Concomitant]
     Active Substance: LEVOTHYROXINE
     Indication: Product used for unknown indication
     Dosage: AT 7AM

REACTIONS (17)
  - Intestinal metastasis [Not Recovered/Not Resolved]
  - Ovarian cancer metastatic [Not Recovered/Not Resolved]
  - Metastases to liver [Not Recovered/Not Resolved]
  - Hepatic neoplasm [Unknown]
  - Decreased appetite [Recovered/Resolved]
  - Nausea [Recovering/Resolving]
  - Abdominal pain [Recovering/Resolving]
  - Pelvic pain [Recovering/Resolving]
  - Insomnia [Recovering/Resolving]
  - Abnormal dreams [Recovered/Resolved]
  - Neoplasm progression [Not Recovered/Not Resolved]
  - Constipation [Not Recovered/Not Resolved]
  - Back pain [Not Recovered/Not Resolved]
  - Chills [Unknown]
  - Chest pain [Not Recovered/Not Resolved]
  - Hypertension [Recovered/Resolved]
  - Hypersensitivity [Unknown]

NARRATIVE: CASE EVENT DATE: 20211208
